FAERS Safety Report 5727454-2 (Version None)
Quarter: 2008Q2

REPORT INFORMATION
  Report Type: 
  Country: None (occurrence: None)
  Receive Date: 20080430
  Receipt Date: 20080403
  Transmission Date: 20081010
  Serious: Yes (Death)
  Sender: FDA-Public Use
  Company Number: 013566

PATIENT
  Age: 50 Year
  Sex: Female

DRUGS (4)
  1. PRIALT [Suspect]
     Indication: DRUG USE FOR UNKNOWN INDICATION
     Dosage: UG, ONCE/HOUR, INTRATHECAL
     Route: 037
  2. BACLOFEN [Concomitant]
  3. CLONIDINE [Concomitant]
  4. FENTANYL [Concomitant]

REACTIONS (1)
  - DEATH [None]
